FAERS Safety Report 18989578 (Version 1)
Quarter: 2021Q1

REPORT INFORMATION
  Report Type: Not Available
  Country: None (occurrence: None)
  Receive Date: 20210309
  Receipt Date: 20210309
  Transmission Date: 20210420
  Serious: No
  Sender: FDA-Public Use
  Company Number: US-AKORN-161400

PATIENT
  Sex: Male

DRUGS (1)
  1. BETIMOL [Suspect]
     Active Substance: TIMOLOL

REACTIONS (3)
  - Insomnia [Unknown]
  - Poor quality sleep [Unknown]
  - Terminal insomnia [Unknown]
